FAERS Safety Report 14484584 (Version 1)
Quarter: 2018Q1

REPORT INFORMATION
  Report Type: Spontaneous
  Country: US (occurrence: US)
  Receive Date: 20180202
  Receipt Date: 20180202
  Transmission Date: 20180509
  Serious: No
  Sender: FDA-Public Use
  Company Number: None

PATIENT
  Age: 68 Year
  Sex: Female
  Weight: 70.2 kg

DRUGS (4)
  1. LEVOTHYROXINE. [Concomitant]
     Active Substance: LEVOTHYROXINE
  2. LEVOFLOXACIN 500 [Suspect]
     Active Substance: LEVOFLOXACIN
     Indication: SINUSITIS
     Route: 048
     Dates: start: 20180111, end: 20180120
  3. CELEBREX [Concomitant]
     Active Substance: CELECOXIB
  4. CALCIUM [Concomitant]
     Active Substance: CALCIUM

REACTIONS (6)
  - Gait inability [None]
  - Musculoskeletal pain [None]
  - Dyspnoea [None]
  - Asthenia [None]
  - Peripheral swelling [None]
  - Depressed level of consciousness [None]

NARRATIVE: CASE EVENT DATE: 20180121
